FAERS Safety Report 7935000-8 (Version None)
Quarter: 2011Q4

REPORT INFORMATION
  Report Type: 
  Country: None (occurrence: None)
  Receive Date: 20111118
  Receipt Date: 20111110
  Transmission Date: 20120403
  Serious: Yes (Hospitalization)
  Sender: FDA-Public Use
  Company Number: 2011SP053117

PATIENT
  Age: 63 Year
  Sex: Male

DRUGS (4)
  1. TEMODAL [Suspect]
     Indication: GLIOBLASTOMA
     Dosage: 380 MG, QD, PO
     Route: 048
     Dates: start: 20110924, end: 20111019
  2. ENOXAPARIN SODIUM [Suspect]
     Indication: PRODUCT USED FOR UNKNOWN INDICATION
     Dosage: 1 DF, QD, SC
     Route: 058
     Dates: start: 20110815
  3. KEPPRA [Concomitant]
  4. DEXAMETHASONE SODIUM PHOSPHATE [Concomitant]

REACTIONS (1)
  - SUBDURAL HAEMATOMA [None]
